FAERS Safety Report 16180689 (Version 1)
Quarter: 2019Q2

REPORT INFORMATION
  Report Type: Spontaneous
  Country: US (occurrence: US)
  Receive Date: 20190410
  Receipt Date: 20190410
  Transmission Date: 20190711
  Serious: No
  Sender: FDA-Public Use
  Company Number: US-BAYER-2019-067890

PATIENT
  Age: 28 Year
  Sex: Female
  Weight: 70 kg

DRUGS (4)
  1. ZICAM [PIROXICAM] [Concomitant]
     Route: 065
  2. CLARITIN [Suspect]
     Active Substance: LORATADINE
     Indication: THROAT IRRITATION
     Dosage: 1 DF, QD
     Route: 048
     Dates: start: 2017
  3. ZYRTEC DAIICHI [Concomitant]
     Indication: HYPERSENSITIVITY
     Route: 048
  4. ZYRTEC DAIICHI [Concomitant]
     Indication: NASOPHARYNGITIS

REACTIONS (1)
  - Drug ineffective [Unknown]

NARRATIVE: CASE EVENT DATE: 20190403
